FAERS Safety Report 7020694-4 (Version None)
Quarter: 2010Q3

REPORT INFORMATION
  Report Type: 
  Country: None (occurrence: None)
  Receive Date: 20100929
  Receipt Date: 20100921
  Transmission Date: 20110219
  Serious: Yes (Other)
  Sender: FDA-Public Use
  Company Number: PHFR2010GB04167

PATIENT
  Sex: Male

DRUGS (7)
  1. CLOZARIL [Suspect]
     Indication: SCHIZOPHRENIA
     Route: 048
     Dates: start: 20040119, end: 20100802
  2. OLANZAPINE [Concomitant]
     Indication: PSYCHOTIC DISORDER
     Dosage: 10 MG, UNK
  3. WARFARIN SODIUM [Concomitant]
     Dosage: 5 MG, QD
  4. RAMIPRIL [Concomitant]
     Dosage: 5 MG, QD
  5. NEBIVOLOL [Concomitant]
     Dosage: 2.5 MG, QD
  6. LORAZEPAM [Concomitant]
     Dosage: 1 DF, PRN
  7. ZOPICLONE [Concomitant]
     Dosage: 1 DF, PRN

REACTIONS (6)
  - CONDUCTION DISORDER [None]
  - CORONARY ARTERY DISEASE [None]
  - EPILEPSY [None]
  - INTRACARDIAC THROMBUS [None]
  - MYOCARDIAL INFARCTION [None]
  - PULMONARY THROMBOSIS [None]
